FAERS Safety Report 9013423 (Version 1)
Quarter: 2013Q1

REPORT INFORMATION
  Report Type: Spontaneous
  Country: US (occurrence: None)
  Receive Date: 20130107
  Receipt Date: 20130107
  Transmission Date: 20140127
  Serious: Yes (Life-Threatening, Hospitalization)
  Sender: FDA-Public Use
  Company Number: None

PATIENT
  Age: 77 Year
  Sex: Male
  Weight: 69.85 kg

DRUGS (3)
  1. GEMCITABINE [Suspect]
     Dosage: 9/21, 10/5, 10/19/12 EVERY 2 WEEKS X 3CYCLES
  2. CISPLATIN [Suspect]
  3. NEULASTA [Suspect]
     Dosage: EVERY 2 WEEKS X 3 9/22, 10/6,10/20/12

REACTIONS (1)
  - Acute coronary syndrome [None]
